FAERS Safety Report 6278105-2 (Version None)
Quarter: 2009Q3

REPORT INFORMATION
  Report Type: 
  Country: None (occurrence: None)
  Receive Date: 20090722
  Receipt Date: 20090714
  Transmission Date: 20100115
  Serious: Yes (Hospitalization)
  Sender: FDA-Public Use
  Company Number: GBWYE719006JUN05

PATIENT
  Age: 76 Year
  Sex: Male

DRUGS (3)
  1. IBUPROFEN [Suspect]
     Indication: CARDIAC FAILURE CONGESTIVE
     Dosage: UNKNOWN
     Route: 048
     Dates: end: 20050511
  2. RAMIPRIL [Suspect]
     Indication: CARDIAC FAILURE CONGESTIVE
     Dosage: 5MG FREQUENCY UNSPECIFIED
     Route: 048
     Dates: end: 20050511
  3. FRUSEMIDE [Suspect]
     Indication: CARDIAC FAILURE CONGESTIVE
     Dosage: 40MG FREQUENCY UNSPECIFIED
     Route: 048
     Dates: end: 20050511

REACTIONS (1)
  - RENAL FAILURE [None]
